FAERS Safety Report 17032791 (Version 2)
Quarter: 2019Q4

REPORT INFORMATION
  Report Type: Spontaneous
  Country: ES (occurrence: ES)
  Receive Date: 20191114
  Receipt Date: 20191121
  Transmission Date: 20200122
  Serious: Yes (Other)
  Sender: FDA-Public Use
  Company Number: ES-B.I. PHARMACEUTICALS,INC./RIDGEFIELD-2019-BI-112882

PATIENT
  Age: 57 Year
  Sex: Female

DRUGS (5)
  1. VARGATEF [Suspect]
     Active Substance: NINTEDANIB
     Indication: LUNG ADENOCARCINOMA
     Route: 065
     Dates: start: 20170601, end: 201906
  2. GILOTRIF [Suspect]
     Active Substance: AFATINIB
     Indication: LUNG ADENOCARCINOMA
     Route: 065
     Dates: start: 20150613
  3. DOCETAXEL. [Concomitant]
     Active Substance: DOCETAXEL
     Dosage: 55-50
     Route: 065
     Dates: end: 201906
  4. GILOTRIF [Suspect]
     Active Substance: AFATINIB
     Route: 065
     Dates: end: 201605
  5. DOCETAXEL. [Concomitant]
     Active Substance: DOCETAXEL
     Indication: LUNG ADENOCARCINOMA
     Dosage: 65
     Route: 065
     Dates: start: 20170601

REACTIONS (7)
  - Gastrointestinal toxicity [Unknown]
  - Malignant neoplasm progression [Unknown]
  - Diarrhoea [Unknown]
  - Malignant neoplasm progression [Unknown]
  - Asthenia [Unknown]
  - Skin toxicity [Unknown]
  - Paraesthesia [Recovered/Resolved]

NARRATIVE: CASE EVENT DATE: 201605
